FAERS Safety Report 24310599 (Version 2)
Quarter: 2024Q3

REPORT INFORMATION
  Report Type: Report from Study
  Country: US (occurrence: US)
  Receive Date: 20240912
  Receipt Date: 20240919
  Transmission Date: 20241016
  Serious: Yes (Hospitalization)
  Sender: ABBVIE
  Company Number: US-ABBVIE-5914890

PATIENT
  Age: 73 Year
  Sex: Male
  Weight: 104.33 kg

DRUGS (4)
  1. HUMIRA [Suspect]
     Active Substance: ADALIMUMAB
     Indication: Psoriasis
     Dosage: FORM STRENGTH-40 MG
     Route: 058
     Dates: start: 202307, end: 20240816
  2. HUMIRA [Suspect]
     Active Substance: ADALIMUMAB
     Dosage: FORM STRENGTH-40 MG
     Route: 058
     Dates: start: 20240907
  3. LOSARTAN [Concomitant]
     Active Substance: LOSARTAN\LOSARTAN POTASSIUM
     Indication: Hypertension
  4. HYDROCHLOROTHIAZIDE [Concomitant]
     Active Substance: HYDROCHLOROTHIAZIDE
     Indication: Hypertension

REACTIONS (5)
  - Gastroenteritis [Recovered/Resolved]
  - Weight decreased [Unknown]
  - Injection site bruising [Unknown]
  - Injection site discharge [Unknown]
  - Scratch [Unknown]

NARRATIVE: CASE EVENT DATE: 20240828
